FAERS Safety Report 4339168-4 (Version None)
Quarter: 2004Q2

REPORT INFORMATION
  Report Type: 
  Country: None (occurrence: None)
  Receive Date: 20040412
  Receipt Date: 20040405
  Transmission Date: 20050107
  Serious: Yes (Hospitalization)
  Sender: FDA-Public Use
  Company Number: TUK2004A00022

PATIENT
  Sex: Male

DRUGS (2)
  1. ACTOS [Suspect]
     Dates: start: 20030501, end: 20030501
  2. METFORMIN HCL [Concomitant]

REACTIONS (7)
  - DYSPNOEA [None]
  - FEELING ABNORMAL [None]
  - HEPATITIS ACUTE [None]
  - HEPATOMEGALY [None]
  - HYPERHIDROSIS [None]
  - LETHARGY [None]
  - NAUSEA [None]
